FAERS Safety Report 11818214 (Version 1)
Quarter: 2015Q4

REPORT INFORMATION
  Report Type: Spontaneous
  Country: US (occurrence: US)
  Receive Date: 20151210
  Receipt Date: 20151210
  Transmission Date: 20160305
  Serious: No
  Sender: FDA-Public Use
  Company Number: US-TEVA-613707ACC

PATIENT
  Age: 27 Year
  Sex: Female
  Weight: 72.64 kg

DRUGS (1)
  1. PARAGARD T 380A [Suspect]
     Active Substance: COPPER
     Indication: CONTRACEPTION
     Dates: start: 20151119, end: 20151119

REACTIONS (2)
  - Muscle spasms [Not Recovered/Not Resolved]
  - Complication of device insertion [Recovered/Resolved]

NARRATIVE: CASE EVENT DATE: 20151119
